FAERS Safety Report 22119550 (Version 2)
Quarter: 2023Q2

REPORT INFORMATION
  Report Type: Spontaneous
  Country: FR (occurrence: FR)
  Receive Date: 20230321
  Receipt Date: 20230518
  Transmission Date: 20230721
  Serious: Yes (Other)
  Sender: FDA-Public Use
  Company Number: FR-SA-SAC20230321000536

PATIENT
  Age: 40 Year
  Sex: Female

DRUGS (1)
  1. DUPIXENT [Suspect]
     Active Substance: DUPILUMAB
     Indication: Chronic rhinosinusitis with nasal polyps
     Dosage: 300 MG
     Route: 065
     Dates: start: 2023

REACTIONS (7)
  - Cataract [Unknown]
  - Diplopia [Unknown]
  - Visual impairment [Unknown]
  - Binocular eye movement disorder [Unknown]
  - Photophobia [Unknown]
  - Visual acuity reduced [Unknown]
  - Myopia [Unknown]

NARRATIVE: CASE EVENT DATE: 20230101
